FAERS Safety Report 6832343-6 (Version None)
Quarter: 2010Q3

REPORT INFORMATION
  Report Type: 
  Country: None (occurrence: None)
  Receive Date: 20100707
  Receipt Date: 20100621
  Transmission Date: 20110219
  Serious: Yes (Other)
  Sender: FDA-Public Use
  Company Number: 1000014817

PATIENT
  Age: 67 Year
  Sex: Female
  Weight: 51 kg

DRUGS (4)
  1. CITALOPRAM HYDROBROMIDE [Suspect]
     Indication: DEPRESSION
     Dosage: 40 MG (40 MG, 1 IN 1 D), ORAL
     Route: 048
     Dates: start: 20090528, end: 20100430
  2. LYSANXIA [Concomitant]
  3. KENZEN [Concomitant]
  4. LEVOTHYROX (TABLETS) [Concomitant]

REACTIONS (5)
  - ADENOCARCINOMA PANCREAS [None]
  - DYSPEPSIA [None]
  - DYSURIA [None]
  - FLATULENCE [None]
  - VISION BLURRED [None]
